FAERS Safety Report 6375536-7 (Version None)
Quarter: 2009Q3

REPORT INFORMATION
  Report Type: 
  Country: None (occurrence: None)
  Receive Date: 20090917
  Receipt Date: 20090917
  Transmission Date: 20100115
  Serious: Yes (Life-Threatening)
  Sender: FDA-Public Use
  Company Number: None

PATIENT
  Sex: Male

DRUGS (1)
  1. AMIODARONE HCL [Suspect]
     Dosage: 150 MG ONE DOSE ONLY IV BOLUS
     Route: 040

REACTIONS (2)
  - CARDIAC ARREST [None]
  - CYANOSIS [None]
